FAERS Safety Report 9782947 (Version 1)
Quarter: 2013Q4

REPORT INFORMATION
  Report Type: Spontaneous
  Country: DK (occurrence: DK)
  Receive Date: 20131226
  Receipt Date: 20131226
  Transmission Date: 20140711
  Serious: Yes (Life-Threatening, Hospitalization)
  Sender: FDA-Public Use
  Company Number: DK-B.I. PHARMACEUTICALS,INC./RIDGEFIELD-2013-BI-43452DB

PATIENT
  Age: 76 Year
  Sex: Male

DRUGS (3)
  1. PRADAXA [Suspect]
     Indication: THROMBOSIS PROPHYLAXIS
     Dosage: 220 MG
     Route: 048
     Dates: start: 20130817, end: 20130922
  2. IBUPROFEN [Suspect]
     Indication: PAIN
     Dosage: 1600 MG
     Route: 048
     Dates: start: 20130917, end: 20130922
  3. BURANA [Concomitant]
     Indication: ANALGESIC THERAPY
     Dosage: 400 MG

REACTIONS (2)
  - Renal failure acute [Not Recovered/Not Resolved]
  - Metabolic acidosis [Not Recovered/Not Resolved]
